FAERS Safety Report 21962295 (Version 1)
Quarter: 2023Q1

REPORT INFORMATION
  Report Type: Spontaneous
  Country: US (occurrence: US)
  Receive Date: 20230207
  Receipt Date: 20230207
  Transmission Date: 20230418
  Serious: No
  Sender: FDA-Public Use
  Company Number: US-PFIZER INC-PV202300022464

PATIENT
  Age: 8 Year
  Sex: Male

DRUGS (1)
  1. EUCRISA [Suspect]
     Active Substance: CRISABOROLE
     Dosage: APPLY 1 APPLICATION TOPICALLY 2 (TWO) TIMES DAILY AS NEEDED
     Route: 061

REACTIONS (2)
  - Rash [Unknown]
  - Pruritus [Unknown]
